FAERS Safety Report 6521935-X (Version None)
Quarter: 2009Q4

REPORT INFORMATION
  Report Type: 
  Country: None (occurrence: None)
  Receive Date: 20091230
  Receipt Date: 20090929
  Transmission Date: 20100525
  Serious: No
  Sender: FDA-Public Use
  Company Number: US-BAYER-200935704NA

PATIENT
  Age: 78 Year
  Sex: Male

DRUGS (2)
  1. ULTRAVIST 300 [Suspect]
     Indication: COMPUTERISED TOMOGRAM ABDOMEN
     Dosage: TOTAL DAILY DOSE: 95 ML
     Route: 042
     Dates: start: 20090929, end: 20090929
  2. VASOTEC [Concomitant]

REACTIONS (2)
  - CHEILITIS [None]
  - LIP SWELLING [None]
